FAERS Safety Report 18017306 (Version 5)
Quarter: 2020Q3

REPORT INFORMATION
  Report Type: Spontaneous
  Country: US (occurrence: US)
  Receive Date: 20200714
  Receipt Date: 20200828
  Transmission Date: 20201103
  Serious: No
  Sender: FDA-Public Use
  Company Number: US-BIOGEN-2020BI00896718

PATIENT
  Sex: Female

DRUGS (3)
  1. TYSABRI [Suspect]
     Active Substance: NATALIZUMAB
     Route: 065
     Dates: end: 20191122
  2. TYSABRI [Suspect]
     Active Substance: NATALIZUMAB
     Indication: MULTIPLE SCLEROSIS
     Route: 065
     Dates: start: 20090721, end: 20130626
  3. TYSABRI [Suspect]
     Active Substance: NATALIZUMAB
     Route: 065
     Dates: start: 20190802, end: 20191220

REACTIONS (9)
  - Gastrooesophageal reflux disease [Unknown]
  - Asthenia [Unknown]
  - Dysstasia [Unknown]
  - Carpal tunnel syndrome [Unknown]
  - Alopecia [Unknown]
  - Muscle atrophy [Unknown]
  - Illness [Unknown]
  - Fatigue [Unknown]
  - Multiple sclerosis [Unknown]
